FAERS Safety Report 19349792 (Version 1)
Quarter: 2021Q2

REPORT INFORMATION
  Report Type: Other
  Country: IT (occurrence: IT)
  Receive Date: 20210531
  Receipt Date: 20210531
  Transmission Date: 20210717
  Serious: Yes (Hospitalization)
  Sender: FDA-Public Use
  Company Number: IT-ROCHE-2836170

PATIENT

DRUGS (4)
  1. PREDNISONE. [Suspect]
     Active Substance: PREDNISONE
     Dosage: 50 MG/DAY
     Route: 065
  2. RITUXIMAB. [Suspect]
     Active Substance: RITUXIMAB
     Indication: PEMPHIGUS
     Dosage: 500 MG?CONCENTRATE FOR SOLUTION FOR INFUSION
     Route: 041
     Dates: start: 20200123
  3. PREDNISONE. [Suspect]
     Active Substance: PREDNISONE
     Indication: PEMPHIGUS
     Dosage: GRADUALLY TAPERED TO 5 MG
     Route: 065
  4. RITUXIMAB. [Suspect]
     Active Substance: RITUXIMAB
     Dosage: CYCLE OF RTX (500 MG X 4 WEEKLY INFUSIONS)?CONCENTRATE FOR SOLUTION FOR INFUSION
     Route: 041
     Dates: start: 201905

REACTIONS (4)
  - Off label use [Unknown]
  - COVID-19 [Recovered/Resolved]
  - Pemphigus [Recovered/Resolved]
  - Influenza like illness [Recovered/Resolved]

NARRATIVE: CASE EVENT DATE: 202001
